FAERS Safety Report 22123386 (Version 1)
Quarter: 2023Q1

REPORT INFORMATION
  Report Type: Spontaneous
  Country: US (occurrence: US)
  Receive Date: 20230322
  Receipt Date: 20230322
  Transmission Date: 20230417
  Serious: No
  Sender: FDA-Public Use
  Company Number: US-BIOGEN-2017BI00483447

PATIENT
  Sex: Female

DRUGS (1)
  1. TYSABRI [Suspect]
     Active Substance: NATALIZUMAB
     Indication: Multiple sclerosis
     Route: 050
     Dates: start: 20130416

REACTIONS (7)
  - Visual acuity reduced [Unknown]
  - Product dose omission issue [Recovered/Resolved]
  - Feeling abnormal [Unknown]
  - Diplopia [Unknown]
  - Gait disturbance [Unknown]
  - Tremor [Unknown]
  - Multiple sclerosis [Unknown]
